FAERS Safety Report 14570596 (Version 1)
Quarter: 2018Q1

REPORT INFORMATION
  Report Type: Report from Study
  Country: IT (occurrence: IT)
  Receive Date: 20180226
  Receipt Date: 20180226
  Transmission Date: 20180509
  Serious: Yes (Other)
  Sender: FDA-Public Use
  Company Number: IT-CONCORDIA PHARMACEUTICALS INC.-E2B_00010092

PATIENT
  Age: 81 Year
  Sex: Female

DRUGS (8)
  1. TAPAZOLE 5 MG COMPRESSE [Concomitant]
  2. SERTRALINE HYDROCHLORIDE. [Concomitant]
     Active Substance: SERTRALINE HYDROCHLORIDE
  3. DIBASE 10.000 U.I./ML GOCCE ORALI, SOLUZIONE [Concomitant]
  4. LANOXIN [Suspect]
     Active Substance: DIGOXIN
     Indication: ATRIAL FIBRILLATION
     Dates: end: 20171231
  5. ELIQUIS [Concomitant]
     Active Substance: APIXABAN
     Route: 048
  6. LASITONE 25 MG + 37 MG CAPSULE RIGIDE [Concomitant]
  7. TRAJENTA 5?MG FILM-COATED TABLETS [Concomitant]
  8. ALLOPURINOL. [Concomitant]
     Active Substance: ALLOPURINOL

REACTIONS (2)
  - Bradycardia [Recovering/Resolving]
  - Toxicity to various agents [Recovering/Resolving]

NARRATIVE: CASE EVENT DATE: 20171230
